FAERS Safety Report 8426106 (Version 8)
Quarter: 2012Q4

REPORT INFORMATION
  Report Type: 
  Country: US (occurrence: US)
  Receive Date: 20120224
  Receipt Date: 20121105
  Transmission Date: 20130627
  Serious: Yes (Hospitalization)
  Sender: FDA-Public Use
  Company Number: PHHO2011US018598

PATIENT
  Age: 65 Year
  Sex: Female
  Weight: 67.1 kg

DRUGS (28)
  1. PLACEBO [Suspect]
     Indication: CARDIAC FAILURE ACUTE
     Route: 048
     Dates: start: 20111029, end: 20111102
  2. FUROSEMIDE [Suspect]
     Dosage: 40 mg, QD
     Route: 048
  3. NITROSTAT [Concomitant]
     Dosage: 0.4 mg, Q5M PRN
     Route: 060
  4. ALDACTONE [Concomitant]
     Indication: CARDIAC FAILURE CHRONIC
     Dosage: 12.5 mg, QD
     Route: 048
     Dates: start: 20060115
  5. ZYLOPRIM [Concomitant]
     Dosage: 100 mg, QD
     Route: 048
  6. VENTOLINE [Concomitant]
     Dosage: 2 DF, QID (2 inhalation INH QID PRN)
  7. ZETIA [Concomitant]
     Dosage: 10 mg, QHS
     Route: 048
  8. FEOSOL [Concomitant]
     Dosage: 324 mg, BID
     Route: 048
  9. APRESOLINE [Concomitant]
     Dosage: 25 mg, Q8H
     Route: 048
  10. ISORDIL [Concomitant]
     Dosage: 40 mg, TID
     Route: 048
  11. REGLAN [Concomitant]
     Dosage: 5 mg, QD
     Route: 048
  12. ASA [Concomitant]
     Dosage: 81 mg, QD
     Route: 048
  13. LIPITOR [Concomitant]
     Dosage: 80 mg, QHS
     Route: 048
  14. COLACE [Concomitant]
     Dosage: 100 mg, BID
     Route: 048
  15. MECLIZINE HYDROCHLORIDE [Concomitant]
     Dosage: 25 mg, QD
     Route: 048
  16. GABAPENTIN [Concomitant]
     Dosage: 600 mg, Q12H
     Route: 048
  17. METOLAZONE [Concomitant]
     Dosage: 25 mg, QD
     Route: 048
  18. BRIMONIDINE TARTRATE [Concomitant]
     Indication: GLAUCOMA
     Dosage: 1 DF, Q12H
  19. TIMOLOL MALEATE [Concomitant]
     Indication: GLAUCOMA
     Dosage: 1 DF, Q12H
  20. TOPROL XL [Concomitant]
     Dosage: 25 mg, QD
     Route: 048
  21. WARFARIN [Concomitant]
     Indication: ATRIAL FIBRILLATION
     Dosage: 5 mg, Daily
     Dates: start: 19941015, end: 20111101
  22. WARFARIN [Concomitant]
     Dosage: 7.5 mg, QSSMT
     Route: 048
  23. TORASEMIDE [Concomitant]
     Dosage: 40 mg, BID
  24. ATORVASTATIN [Concomitant]
     Indication: HYPERLIPIDAEMIA
     Dosage: 40 mg, D (Daily)
     Dates: start: 20060115
  25. METOPROLOL SUCCINATE [Concomitant]
     Indication: CARDIAC FAILURE CHRONIC
     Dosage: 25 mg, D (Daily)
     Route: 048
     Dates: start: 20060115, end: 20111101
  26. SPIRONOLACTONE [Concomitant]
     Indication: CARDIAC FAILURE CHRONIC
     Dosage: 12.5 mg, Daily
     Dates: start: 20060115
  27. ASPIRIN [Concomitant]
     Indication: CORONARY ARTERY DISEASE
     Dosage: 81 mg D (Daily)
     Route: 048
     Dates: start: 19990115
  28. ISDN [Concomitant]
     Indication: CARDIAC FAILURE CHRONIC
     Dosage: 40 mg, TID
     Route: 048
     Dates: start: 20060115

REACTIONS (2)
  - Renal impairment [Recovered/Resolved]
  - Cardiac failure [Recovered/Resolved]
